FAERS Safety Report 4672615-7 (Version None)
Quarter: 2005Q2

REPORT INFORMATION
  Report Type: 
  Country: None (occurrence: None)
  Receive Date: 20050524
  Receipt Date: 20030602
  Transmission Date: 20051028
  Serious: Yes (Hospitalization)
  Sender: FDA-Public Use
  Company Number: DK-SANOFI-SYNTHELABO-D01200300720

PATIENT
  Sex: Male
  Weight: 62 kg

DRUGS (4)
  1. ALFUZOSIN [Suspect]
     Route: 048
     Dates: start: 20021122, end: 20041109
  2. PLACEBO [Suspect]
     Dosage: NA OD
     Route: 048
  3. ATACAND [Concomitant]
     Dosage: 8 MG
     Route: 065
     Dates: start: 19990101
  4. PLENDIL [Concomitant]
     Dosage: 25 MG
     Route: 065
     Dates: start: 19990101

REACTIONS (2)
  - SYNCOPE [None]
  - VERTIGO [None]
